FAERS Safety Report 23446796 (Version 1)
Quarter: 2024Q1

REPORT INFORMATION
  Report Type: Spontaneous
  Country: None (occurrence: US)
  Receive Date: 20240126
  Receipt Date: 20240126
  Transmission Date: 20240409
  Serious: Yes (Life-Threatening, Other)
  Sender: FDA-Public Use
  Company Number: US-Amphastar Pharmaceuticals, Inc.-2152103

PATIENT
  Age: 38 Year
  Sex: Female
  Weight: 122 kg

DRUGS (2)
  1. MEDROXYPROGESTERONE ACETATE [Suspect]
     Active Substance: MEDROXYPROGESTERONE ACETATE
     Indication: Contraception
     Route: 030
     Dates: start: 20230323
  2. Prenatal vitamins (unspecified) [Concomitant]

REACTIONS (2)
  - Hypersensitivity [Unknown]
  - Angioedema [Unknown]

NARRATIVE: CASE EVENT DATE: 20230323
